FAERS Safety Report 8183642-X (Version None)
Quarter: 2012Q1

REPORT INFORMATION
  Report Type: 
  Country: None (occurrence: None)
  Receive Date: 20120305
  Receipt Date: 20120224
  Transmission Date: 20120608
  Serious: Yes (Other)
  Sender: FDA-Public Use
  Company Number: US-JNJFOC-20120213535

PATIENT
  Sex: Female
  Weight: 90.72 kg

DRUGS (1)
  1. TOPAMAX [Suspect]
     Indication: PAIN IN EXTREMITY
     Route: 048
     Dates: start: 20111201, end: 20120201

REACTIONS (3)
  - MANIA [None]
  - OVERDOSE [None]
  - DYSGEUSIA [None]
